FAERS Safety Report 8826841 (Version 1)
Quarter: 2012Q4

REPORT INFORMATION
  Report Type: 
  Country: GB (occurrence: GB)
  Receive Date: 20121005
  Receipt Date: 20121005
  Transmission Date: 20130627
  Serious: Yes (Other)
  Sender: FDA-Public Use
  Company Number: GB-PFIZER INC-2012244811

PATIENT
  Age: 42 Year
  Sex: Male
  Weight: 71 kg

DRUGS (11)
  1. IBUPROFEN [Suspect]
     Indication: PRODUCT USED FOR UNKNOWN INDICATION
     Dosage: UNK
     Dates: start: 20120611
  2. CHLORPROMAZINE [Concomitant]
     Dosage: UNK
     Route: 065
     Dates: start: 20120612
  3. DIAZEPAM [Concomitant]
     Dosage: UNK
     Route: 065
     Dates: start: 20120612, end: 20120814
  4. AMOXICILLIN [Concomitant]
     Dosage: UNK
     Route: 065
     Dates: start: 20120616, end: 20120623
  5. LANSOPRAZOLE [Concomitant]
     Dosage: UNK
     Dates: start: 20120625
  6. PARACETAMOL [Concomitant]
     Dosage: UNK
     Dates: start: 20120625, end: 20120702
  7. ZOPICLONE [Concomitant]
     Dosage: UNK
     Route: 065
     Dates: start: 20120709, end: 20120716
  8. CO-CODAMOL [Concomitant]
     Dosage: UNK
     Dates: start: 20120730, end: 20120829
  9. MIRTAZAPINE [Concomitant]
     Dosage: UNK
     Route: 065
     Dates: start: 20120816
  10. ASPIRIN [Concomitant]
     Dosage: UNK
     Route: 065
     Dates: start: 20120901
  11. PROPRANOLOL [Concomitant]
     Dosage: UNK
     Route: 065
     Dates: start: 20120919

REACTIONS (2)
  - Gastric ulcer [Unknown]
  - Haematemesis [Recovered/Resolved]
